FAERS Safety Report 24970325 (Version 1)
Quarter: 2025Q1

REPORT INFORMATION
  Report Type: Spontaneous
  Country: CZ (occurrence: CZ)
  Receive Date: 20250214
  Receipt Date: 20250214
  Transmission Date: 20250408
  Serious: Yes (Life-Threatening, Hospitalization, Other)
  Sender: AMGEN
  Company Number: None

PATIENT
  Age: 47 Year
  Sex: Male
  Weight: 79 kg

DRUGS (1)
  1. NPLATE [Suspect]
     Active Substance: ROMIPLOSTIM
     Indication: Immune thrombocytopenia
     Route: 058

REACTIONS (1)
  - Cerebral venous sinus thrombosis [Recovering/Resolving]

NARRATIVE: CASE EVENT DATE: 20250102
